FAERS Safety Report 5182685-8 (Version None)
Quarter: 2006Q4

REPORT INFORMATION
  Report Type: 
  Country: None (occurrence: None)
  Receive Date: 20061220
  Receipt Date: 20061218
  Transmission Date: 20070319
  Serious: Yes (Hospitalization)
  Sender: FDA-Public Use
  Company Number: FR-AVENTIS-200614436FR

PATIENT
  Age: 57 Year
  Sex: Male

DRUGS (3)
  1. RIFINAH [Suspect]
     Indication: DRUG USE FOR UNKNOWN INDICATION
     Route: 048
     Dates: start: 20061001
  2. NEORAL [Suspect]
     Indication: PSORIASIS
     Route: 048
     Dates: start: 20030701, end: 20061001
  3. NEORAL [Suspect]
     Dosage: DOSE: INCREASED NOS
     Route: 048
     Dates: start: 20061001

REACTIONS (4)
  - CONDITION AGGRAVATED [None]
  - DRUG INTERACTION [None]
  - PSORIASIS [None]
  - TOXIC SKIN ERUPTION [None]
